FAERS Safety Report 6814923-7 (Version None)
Quarter: 2010Q3

REPORT INFORMATION
  Report Type: 
  Country: None (occurrence: None)
  Receive Date: 20100701
  Receipt Date: 20100701
  Transmission Date: 20110219
  Serious: No
  Sender: FDA-Public Use
  Company Number: None

PATIENT
  Sex: Male
  Weight: 65.7716 kg

DRUGS (1)
  1. TAMSULOSIN HCL [Suspect]
     Indication: DYSURIA
     Dosage: 0.4MG 1/DAY
     Dates: start: 20100616

REACTIONS (4)
  - BACK PAIN [None]
  - INSOMNIA [None]
  - NASAL CONGESTION [None]
  - SINUSITIS [None]
